FAERS Safety Report 8823864 (Version 1)
Quarter: 2012Q4

REPORT INFORMATION
  Report Type: 
  Country: US (occurrence: US)
  Receive Date: 20121003
  Receipt Date: 20121003
  Transmission Date: 20130627
  Serious: Yes (Hospitalization, Disabling, Other)
  Sender: FDA-Public Use
  Company Number: US-009507513-2007-153550-NL

PATIENT

DRUGS (4)
  1. NUVARING [Suspect]
     Indication: CONTRACEPTION
     Dosage: DOSE TEXT: 3 WEEKS IN, 1 WEEK OUT, CONTINUING: NO
     Route: 067
     Dates: start: 200503, end: 20061112
  2. EXCEDRIN (ACETAMINOPHEN (+) ASPIRIN (+) CAFFEINE) [Concomitant]
     Indication: PRODUCT USED FOR UNKNOWN INDICATION
     Dosage: FREQUENCY: OM
  3. ESTROGENS (UNSPECIFIED) [Concomitant]
     Indication: PRODUCT USED FOR UNKNOWN INDICATION
  4. TRIAZOLAM [Concomitant]
     Indication: PRODUCT USED FOR UNKNOWN INDICATION
     Dosage: FREQUENCY: PRN

REACTIONS (21)
  - Dyslipidaemia [Unknown]
  - Cerebral infarction [Unknown]
  - Deep vein thrombosis [Unknown]
  - Uterovaginal prolapse [Unknown]
  - Urinary incontinence [Unknown]
  - Adjustment disorder [Unknown]
  - Rotator cuff syndrome [Unknown]
  - Fall [Unknown]
  - Extraocular muscle paresis [Unknown]
  - Joint dislocation [Unknown]
  - Pain in extremity [Not Recovered/Not Resolved]
  - Pelvic pain [Unknown]
  - Vulvovaginal pruritus [Unknown]
  - Dysmenorrhoea [Unknown]
  - Vaginal discharge [Unknown]
  - Menorrhagia [Unknown]
  - Rash [Unknown]
  - Metrorrhagia [Unknown]
  - Depression [Not Recovered/Not Resolved]
  - Hypertension [Unknown]
  - Transient ischaemic attack [Unknown]
